FAERS Safety Report 9702819 (Version 1)
Quarter: 2013Q4

REPORT INFORMATION
  Report Type: Spontaneous
  Country: BE (occurrence: BE)
  Receive Date: 20131121
  Receipt Date: 20131121
  Transmission Date: 20140711
  Serious: Yes (Life-Threatening, Hospitalization, Other)
  Sender: FDA-Public Use
  Company Number: BE-GLAXOSMITHKLINE-B0940646A

PATIENT
  Age: 77 Year
  Sex: Male
  Weight: 75 kg

DRUGS (8)
  1. VOTRIENT [Suspect]
     Indication: METASTATIC RENAL CELL CARCINOMA
     Dosage: 800MG PER DAY
     Route: 065
     Dates: start: 20130527, end: 20130621
  2. TORISEL [Suspect]
     Indication: METASTATIC RENAL CELL CARCINOMA
     Dosage: 20MG WEEKLY
     Route: 042
     Dates: start: 20130715, end: 20131004
  3. ATACAND [Concomitant]
     Route: 048
  4. ASAFLOW [Concomitant]
     Route: 048
  5. EZETROL [Concomitant]
     Route: 048
  6. SPIRONOLACTONE [Concomitant]
     Route: 048
  7. KREDEX [Concomitant]
     Route: 048
  8. MEDROL [Concomitant]
     Route: 048
     Dates: start: 20131004

REACTIONS (5)
  - Cardiac failure acute [Recovering/Resolving]
  - Interstitial lung disease [Recovering/Resolving]
  - Dyspnoea [Unknown]
  - Orthopnoea [Unknown]
  - Cough [Unknown]
